FAERS Safety Report 4824353-5 (Version None)
Quarter: 2005Q4

REPORT INFORMATION
  Report Type: 
  Country: None (occurrence: None)
  Receive Date: 20051108
  Receipt Date: 20051028
  Transmission Date: 20060501
  Serious: Yes (Other)
  Sender: FDA-Public Use
  Company Number: 2005149114

PATIENT
  Age: 55 Year
  Sex: Female
  Weight: 81.1939 kg

DRUGS (8)
  1. NORVASC [Suspect]
     Indication: BLOOD PRESSURE INCREASED
     Dosage: 5 MG (5 MG, DAILY INTERVAL:  EVERY DAY)
     Dates: start: 20000101
  2. NEURONTIN [Suspect]
     Indication: NEUROPATHY
     Dosage: 1800 MG (600 MG, TID INTERVAL:  EVERY DAY)
  3. METHOTREXATE [Concomitant]
  4. SYNTHROID [Concomitant]
  5. PRAVACHOL [Concomitant]
  6. FOLIC ACID [Concomitant]
  7. PLAQUENIL [Concomitant]
  8. SULFASALAZINE [Concomitant]

REACTIONS (6)
  - DRY EYE [None]
  - DRY MOUTH [None]
  - FEELING HOT [None]
  - INSOMNIA [None]
  - NEUROPATHY [None]
  - RHEUMATOID ARTHRITIS [None]
